FAERS Safety Report 7629290-9 (Version None)
Quarter: 2011Q3

REPORT INFORMATION
  Report Type: 
  Country: None (occurrence: None)
  Receive Date: 20110701
  Receipt Date: 20101026
  Transmission Date: 20111222
  Serious: Yes (Other)
  Sender: FDA-Public Use
  Company Number: 7024892

PATIENT
  Age: 38 Year
  Sex: Female

DRUGS (3)
  1. DILANTIN [Concomitant]
  2. REBIF [Suspect]
     Indication: PRODUCT USED FOR UNKNOWN INDICATION
     Dosage: 22 MCG, 3 IN 1 WK, SUBCUTANEOUS
     Route: 058
     Dates: start: 20101005, end: 20100101
  3. TOPAMAX [Concomitant]

REACTIONS (4)
  - ANTICONVULSANT DRUG LEVEL [None]
  - INJECTION SITE PAIN [None]
  - CONVULSION [None]
  - ANTICONVULSANT DRUG LEVEL DECREASED [None]
